FAERS Safety Report 4774923-8 (Version None)
Quarter: 2005Q3

REPORT INFORMATION
  Report Type: 
  Country: None (occurrence: None)
  Receive Date: 20050919
  Receipt Date: 20050907
  Transmission Date: 20060218
  Serious: Yes (Hospitalization)
  Sender: FDA-Public Use
  Company Number: 2005125297

PATIENT

DRUGS (4)
  1. VFEND [Suspect]
     Indication: PNEUMONIA
     Dosage: INTRAVENOUS
     Route: 042
     Dates: start: 20050826
  2. CLINDAMYCIN PHOSPHATE [Suspect]
     Indication: PNEUMONIA
     Dosage: 1800 MG (600 MG, TID), INTRAVENOUS
     Route: 042
  3. MEROPEN (MEROPENEM) [Suspect]
     Indication: PNEUMONIA
     Dosage: 1.5 GRAM (0.5 GRAM, TID), INTRAVENOUS
     Route: 042
  4. NSAID'S (NSAID'S) [Suspect]
     Indication: ILL-DEFINED DISORDER
     Dosage: ORAL
     Route: 048

REACTIONS (5)
  - DEHYDRATION [None]
  - DIABETES MELLITUS INADEQUATE CONTROL [None]
  - DIALYSIS [None]
  - HEPATIC FUNCTION ABNORMAL [None]
  - RENAL FAILURE ACUTE [None]
